FAERS Safety Report 8305864-7 (Version None)
Quarter: 2012Q2

REPORT INFORMATION
  Report Type: 
  Country: None (occurrence: None)
  Receive Date: 20120418
  Receipt Date: 20120404
  Transmission Date: 20120825
  Serious: Yes (Death, Life-Threatening, Other)
  Sender: FDA-Public Use
  Company Number: 2012MA003892

PATIENT
  Age: 25 Year
  Sex: Female

DRUGS (5)
  1. PROPRANOLOL HCL [Suspect]
     Indication: ANXIETY
     Dosage: 10 MG
     Dates: start: 20111001
  2. MIDAZOLAM [Concomitant]
  3. MORPHINE [Concomitant]
  4. SUXAMETHONIUM [Concomitant]
  5. ALTEPLASE (ALTEPLASE) [Suspect]
     Indication: PULMONARY EMBOLISM
     Dosage: 50 MG;BID;IV
     Route: 042
     Dates: start: 20111001, end: 20111001

REACTIONS (21)
  - PHAEOCHROMOCYTOMA [None]
  - PULMONARY EMBOLISM [None]
  - PLEURAL EFFUSION [None]
  - ARTERIOSCLEROSIS CORONARY ARTERY [None]
  - RIGHT VENTRICULAR FAILURE [None]
  - HAEMOGLOBIN DECREASED [None]
  - HYPERTENSION [None]
  - CONDITION AGGRAVATED [None]
  - WHITE BLOOD CELL COUNT INCREASED [None]
  - NEUTROPHIL COUNT INCREASED [None]
  - THORACIC HAEMORRHAGE [None]
  - BLOOD GLUCOSE INCREASED [None]
  - PULMONARY CONGESTION [None]
  - ABDOMINAL PAIN [None]
  - PULMONARY OEDEMA [None]
  - CHEST INJURY [None]
  - LIVER DISORDER [None]
  - CARDIAC ARREST [None]
  - PULSELESS ELECTRICAL ACTIVITY [None]
  - METABOLIC ACIDOSIS [None]
  - TUMOUR HAEMORRHAGE [None]
